FAERS Safety Report 7765625-4 (Version None)
Quarter: 2011Q3

REPORT INFORMATION
  Report Type: 
  Country: None (occurrence: None)
  Receive Date: 20110921
  Receipt Date: 20110919
  Transmission Date: 20111222
  Serious: Yes (Death)
  Sender: FDA-Public Use
  Company Number: PHHY2011BR83291

PATIENT
  Sex: Female

DRUGS (6)
  1. FORMOTEROL FUMARATE [Suspect]
     Indication: DYSPNOEA
  2. OMEPRAZOLE [Concomitant]
  3. FUROSEMIDE [Concomitant]
  4. PREDNISONE [Concomitant]
  5. ENALAPRIL MALEATE [Concomitant]
  6. FORMOTEROL FUMARATE [Suspect]
     Indication: RESPIRATORY FAILURE
     Dosage: 2 DF, Q12H

REACTIONS (2)
  - CARDIAC FAILURE [None]
  - CARDIAC ARREST [None]
